FAERS Safety Report 4955439-2 (Version None)
Quarter: 2006Q1

REPORT INFORMATION
  Report Type: 
  Country: None (occurrence: None)
  Receive Date: 20060322
  Receipt Date: 20060308
  Transmission Date: 20060701
  Serious: Yes (Other)
  Sender: FDA-Public Use
  Company Number: US-2006-000291

PATIENT
  Age: 46 Year
  Sex: Female
  Weight: 52 kg

DRUGS (12)
  1. BETASERON [Suspect]
     Indication: RELAPSING-REMITTING MULTIPLE SCLEROSIS
     Dosage: SEE IMAGE
     Route: 058
     Dates: start: 20050101, end: 20050101
  2. BETASERON [Suspect]
     Indication: RELAPSING-REMITTING MULTIPLE SCLEROSIS
     Dosage: SEE IMAGE
     Route: 058
     Dates: start: 20050818, end: 20050101
  3. BETASERON [Suspect]
     Indication: RELAPSING-REMITTING MULTIPLE SCLEROSIS
     Dosage: SEE IMAGE
     Route: 058
     Dates: start: 20050707, end: 20050818
  4. BETASERON [Suspect]
     Indication: RELAPSING-REMITTING MULTIPLE SCLEROSIS
     Dosage: SEE IMAGE
     Route: 058
     Dates: start: 20050101
  5. CORTICOSTEROIDS () [Suspect]
     Dates: start: 20050602, end: 20050606
  6. NEURONTIN [Concomitant]
  7. ORTHO TRI-CYCLEN LO (NORGESTIMATE) [Concomitant]
  8. LECITHIN (LECITHIN) [Concomitant]
  9. VITAMIN B COMPLEX CAP [Concomitant]
  10. VITAMIN E [Concomitant]
  11. ASCORBIC ACID [Concomitant]
  12. ZINC (ZINC) [Concomitant]

REACTIONS (4)
  - DEPRESSION [None]
  - IRRITABILITY [None]
  - LIVER FUNCTION TEST ABNORMAL [None]
  - RAYNAUD'S PHENOMENON [None]
